FAERS Safety Report 8597369-3 (Version None)
Quarter: 2012Q3

REPORT INFORMATION
  Report Type: 
  Country: None (occurrence: None)
  Receive Date: 20120816
  Receipt Date: 20120810
  Transmission Date: 20120928
  Serious: No
  Sender: FDA-Public Use
  Company Number: US-PFIZER INC-2012168739

PATIENT
  Sex: Female

DRUGS (1)
  1. ADVIL PM [Suspect]
     Dosage: UNK
     Dates: start: 20120711

REACTIONS (5)
  - DIZZINESS [None]
  - FEELING ABNORMAL [None]
  - RASH [None]
  - PRURITUS [None]
  - INSOMNIA [None]
